FAERS Safety Report 18256066 (Version 1)
Quarter: 2020Q3

REPORT INFORMATION
  Report Type: Report from Study
  Country: HN (occurrence: HN)
  Receive Date: 20200911
  Receipt Date: 20200911
  Transmission Date: 20201103
  Serious: Yes (Other)
  Sender: FDA-Public Use
  Company Number: NVSC2020HN246854

PATIENT
  Age: 85 Year
  Sex: Male

DRUGS (1)
  1. EXFORGE HCT [Suspect]
     Active Substance: AMLODIPINE BESYLATE\HYDROCHLOROTHIAZIDE\VALSARTAN
     Indication: PRODUCT USED FOR UNKNOWN INDICATION
     Dosage: UNK (APPROXIMATELY SINCE 14 DAYS)
     Route: 065

REACTIONS (3)
  - Dementia Alzheimer^s type [Unknown]
  - Gait disturbance [Unknown]
  - Blindness [Unknown]
